FAERS Safety Report 5513123-0 (Version None)
Quarter: 2007Q4

REPORT INFORMATION
  Report Type: 
  Country: None (occurrence: None)
  Receive Date: 20071112
  Receipt Date: 20071107
  Transmission Date: 20080405
  Serious: Yes (Hospitalization)
  Sender: FDA-Public Use
  Company Number: IT-JNJFOC-20071002024

PATIENT
  Sex: Female

DRUGS (2)
  1. NIZORAL [Suspect]
     Indication: BLOOD CORTISOL INCREASED
     Route: 048
  2. EUTIROX [Concomitant]
     Route: 048

REACTIONS (5)
  - ABDOMINAL PAIN UPPER [None]
  - JAUNDICE [None]
  - NAUSEA [None]
  - OFF LABEL USE [None]
  - PRURITUS [None]
